FAERS Safety Report 5357137-2 (Version None)
Quarter: 2007Q2

REPORT INFORMATION
  Report Type: 
  Country: None (occurrence: None)
  Receive Date: 20070612
  Receipt Date: 20070612
  Transmission Date: 20071010
  Serious: Yes (Hospitalization)
  Sender: FDA-Public Use
  Company Number: None

PATIENT
  Age: 59 Year
  Sex: Male

DRUGS (2)
  1. AZACITIDINE [Suspect]
     Indication: MYELODYSPLASTIC SYNDROME
     Dosage: 100MG EVERY DAY IV
     Route: 042
     Dates: start: 20070410, end: 20070417
  2. AZACITIDINE [Suspect]
     Indication: NON-HODGKIN'S LYMPHOMA
     Dosage: 100MG EVERY DAY IV
     Route: 042
     Dates: start: 20070410, end: 20070417

REACTIONS (1)
  - THROMBOCYTOPENIA [None]
